FAERS Safety Report 10562743 (Version 1)
Quarter: 2014Q4

REPORT INFORMATION
  Report Type: Report from Study
  Country: US (occurrence: US)
  Receive Date: 20141104
  Receipt Date: 20141104
  Transmission Date: 20150529
  Serious: Yes (Other)
  Sender: FDA-Public Use
  Company Number: US-PFIZER INC-2014298560

PATIENT
  Age: 57 Year
  Sex: Male
  Weight: 82.2 kg

DRUGS (26)
  1. TYLENOL [Concomitant]
     Active Substance: ACETAMINOPHEN
  2. COLACE [Concomitant]
     Active Substance: DOCUSATE SODIUM
  3. ZOFRAN [Concomitant]
     Active Substance: ONDANSETRON HYDROCHLORIDE
  4. BENADRYL [Concomitant]
     Active Substance: DIPHENHYDRAMINE HYDROCHLORIDE
  5. HYDROCORTISONE. [Concomitant]
     Active Substance: HYDROCORTISONE
  6. POTASSIUM CHLORIDE. [Concomitant]
     Active Substance: POTASSIUM CHLORIDE
  7. VICODIN [Concomitant]
     Active Substance: ACETAMINOPHEN\HYDROCODONE BITARTRATE
  8. CALCIUM GLUCONATE. [Concomitant]
     Active Substance: CALCIUM GLUCONATE
  9. FENTANYL. [Concomitant]
     Active Substance: FENTANYL
  10. LIDOCAINE. [Concomitant]
     Active Substance: LIDOCAINE
  11. PHENYLEPHRINE [Concomitant]
     Active Substance: PHENYLEPHRINE\PHENYLEPHRINE HYDROCHLORIDE
  12. VALIUM [Concomitant]
     Active Substance: DIAZEPAM
  13. VORICONAZOLE. [Suspect]
     Active Substance: VORICONAZOLE
     Dosage: REGIMEN # 2: 500 MG, UNK
     Route: 042
  14. HEPARIN [Concomitant]
     Active Substance: HEPARIN SODIUM
  15. KEFZOL [Concomitant]
     Active Substance: CEFAZOLIN SODIUM
  16. AMPHOTERICINE B, LIPOSOME [Suspect]
     Active Substance: AMPHOTERICIN B
     Indication: MENINGITIS FUNGAL
     Dosage: 450 MG, UNK
     Route: 042
  17. EPHEDRINE [Concomitant]
     Active Substance: EPHEDRINE
  18. PROPOFOL. [Concomitant]
     Active Substance: PROPOFOL
  19. ROCURONIUM [Concomitant]
     Active Substance: ROCURONIUM BROMIDE
  20. VORICONAZOLE. [Suspect]
     Active Substance: VORICONAZOLE
     Indication: MENINGITIS FUNGAL
     Dosage: 1000 MG, UNK
     Route: 042
  21. TRICOR [Concomitant]
     Active Substance: FENOFIBRATE
  22. MORPHINE [Concomitant]
     Active Substance: MORPHINE
  23. DEXAMETHASONE. [Concomitant]
     Active Substance: DEXAMETHASONE
  24. CORGARD [Concomitant]
     Active Substance: NADOLOL
  25. PRILOSEC [Concomitant]
     Active Substance: OMEPRAZOLE MAGNESIUM
  26. VERSED [Concomitant]
     Active Substance: MIDAZOLAM HYDROCHLORIDE

REACTIONS (14)
  - Blood magnesium decreased [Unknown]
  - Pulmonary oedema [Unknown]
  - Liver function test abnormal [Unknown]
  - Dry skin [Unknown]
  - Memory impairment [Unknown]
  - Infusion related reaction [Unknown]
  - Blood potassium decreased [Unknown]
  - Hallucination, visual [Unknown]
  - Photopsia [Unknown]
  - Acute kidney injury [Unknown]
  - Fluid overload [Unknown]
  - Rash pruritic [Unknown]
  - Dyspnoea [Unknown]
  - Nausea [Unknown]

NARRATIVE: CASE EVENT DATE: 20121103
